FAERS Safety Report 18548300 (Version 3)
Quarter: 2023Q2

REPORT INFORMATION
  Report Type: Spontaneous
  Country: HR (occurrence: HR)
  Receive Date: 20201125
  Receipt Date: 20230526
  Transmission Date: 20230721
  Serious: Yes (Hospitalization, Other)
  Sender: FDA-Public Use
  Company Number: HR-NOVARTISPH-NVSC2011HR000448

PATIENT
  Age: 31 Year
  Sex: Female

DRUGS (36)
  1. CARBAMAZEPINE [Interacting]
     Active Substance: CARBAMAZEPINE
     Indication: Pain
     Dosage: 200 MG, TID
     Route: 065
     Dates: start: 200709
  2. BACLOFEN [Suspect]
     Active Substance: BACLOFEN
     Indication: Pain
     Dosage: 10 MG, TID
     Route: 065
     Dates: start: 200709
  3. BACLOFEN [Suspect]
     Active Substance: BACLOFEN
     Dosage: 25 MG, TID
     Route: 065
     Dates: start: 200805
  4. BACLOFEN [Suspect]
     Active Substance: BACLOFEN
     Dosage: 25 MG, TID
     Route: 065
     Dates: start: 200904
  5. BACLOFEN [Suspect]
     Active Substance: BACLOFEN
     Dosage: 25 MG, TID
     Route: 065
     Dates: start: 201003
  6. DIAZEPAM [Suspect]
     Active Substance: DIAZEPAM
     Indication: Pain
     Dosage: 5 MG, QD
     Route: 065
     Dates: start: 200709
  7. DIAZEPAM [Suspect]
     Active Substance: DIAZEPAM
     Dosage: 1 DOSAGE FORM, QD
     Route: 065
     Dates: start: 201003
  8. FENTANYL [Suspect]
     Active Substance: FENTANYL
     Indication: Pain
     Dosage: 100 UG/72 H
     Route: 062
     Dates: start: 201003
  9. PREGABALIN [Suspect]
     Active Substance: PREGABALIN
     Indication: Pain
     Dosage: 300 MG, BID
     Route: 065
     Dates: start: 201003
  10. GABAPENTIN [Suspect]
     Active Substance: GABAPENTIN
     Indication: Mental disorder
     Dosage: 300 MG, TID
     Route: 065
     Dates: start: 200904
  11. ACETAMINOPHEN\TRAMADOL HYDROCHLORIDE [Suspect]
     Active Substance: ACETAMINOPHEN\TRAMADOL HYDROCHLORIDE
     Indication: Pain
     Dosage: 2 DF, TID (TRAMADOL 37.5MG/PARACETAMOL 325MG)
     Route: 065
     Dates: start: 200709
  12. ACETAMINOPHEN\TRAMADOL HYDROCHLORIDE [Suspect]
     Active Substance: ACETAMINOPHEN\TRAMADOL HYDROCHLORIDE
     Dosage: 2 DF, TID (TRAMADOL 37.5MG/PARACETAMOL 325MG)
     Route: 065
     Dates: start: 200805
  13. ACETAMINOPHEN\TRAMADOL HYDROCHLORIDE [Suspect]
     Active Substance: ACETAMINOPHEN\TRAMADOL HYDROCHLORIDE
     Dosage: 2 DF, TID (TRAMADOL 37.5MG/PARACETAMOL 325MG)
     Route: 065
     Dates: start: 200904
  14. ACETAMINOPHEN\TRAMADOL HYDROCHLORIDE [Suspect]
     Active Substance: ACETAMINOPHEN\TRAMADOL HYDROCHLORIDE
     Dosage: UNK (PP)
     Route: 065
     Dates: start: 201003
  15. OXYCODONE HYDROCHLORIDE [Suspect]
     Active Substance: OXYCODONE HYDROCHLORIDE
     Indication: Pain
     Dosage: 10 MG, TID
     Route: 065
     Dates: start: 200904
  16. OXYCODONE HYDROCHLORIDE [Suspect]
     Active Substance: OXYCODONE HYDROCHLORIDE
     Dosage: 10 MG, PP
     Route: 065
     Dates: start: 201003
  17. OXYCODONE HYDROCHLORIDE [Suspect]
     Active Substance: OXYCODONE HYDROCHLORIDE
     Dosage: 13 MG
     Route: 065
     Dates: start: 201003
  18. BUPRENORPHINE [Suspect]
     Active Substance: BUPRENORPHINE
     Indication: Bradyphrenia
     Dosage: 70 MG, Q72H
     Route: 065
     Dates: start: 200904
  19. ESOMEPRAZOLE [Suspect]
     Active Substance: ESOMEPRAZOLE
     Indication: Asthenia
     Dosage: 20 MG, BID
     Route: 065
     Dates: start: 201003
  20. PANTOPRAZOLE SODIUM [Suspect]
     Active Substance: PANTOPRAZOLE SODIUM
     Indication: Product used for unknown indication
     Dosage: 20 MG
     Route: 065
     Dates: start: 200904
  21. RANITIDINE [Suspect]
     Active Substance: RANITIDINE
     Indication: Product used for unknown indication
     Dosage: UNK
     Route: 065
     Dates: start: 200709
  22. IBUPROFEN [Suspect]
     Active Substance: IBUPROFEN
     Indication: Pain
     Dosage: 400 MG
     Route: 065
     Dates: start: 200703
  23. SERTRALINE HYDROCHLORIDE [Suspect]
     Active Substance: SERTRALINE HYDROCHLORIDE
     Indication: Headache
     Dosage: 50 MG, QD
     Route: 065
     Dates: start: 200805
  24. SERTRALINE HYDROCHLORIDE [Suspect]
     Active Substance: SERTRALINE HYDROCHLORIDE
     Indication: Pain
     Dosage: 1 DF
     Route: 065
     Dates: start: 200805
  25. SERTRALINE HYDROCHLORIDE [Suspect]
     Active Substance: SERTRALINE HYDROCHLORIDE
     Dosage: 50 MG, QD
     Route: 065
     Dates: start: 200904
  26. PIROXICAM [Suspect]
     Active Substance: PIROXICAM
     Indication: Musculoskeletal stiffness
     Dosage: 20 MG
     Route: 065
     Dates: start: 200709
  27. PIROXICAM [Suspect]
     Active Substance: PIROXICAM
     Indication: Pain
  28. LEVOTHYROXINE SODIUM [Suspect]
     Active Substance: LEVOTHYROXINE SODIUM
     Indication: Quadriparesis
     Dosage: 50 UG
     Route: 065
     Dates: start: 200703
  29. LEVOTHYROXINE SODIUM [Suspect]
     Active Substance: LEVOTHYROXINE SODIUM
     Indication: Pain
     Dosage: 75 UG
     Route: 065
     Dates: start: 200703
  30. LEVOTHYROXINE SODIUM [Suspect]
     Active Substance: LEVOTHYROXINE SODIUM
     Dosage: 50 UG
     Route: 065
     Dates: start: 201003
  31. NEUROBION FORTE [Suspect]
     Active Substance: CYANOCOBALAMIN\PYRIDOXINE HYDROCHLORIDE\THIAMINE DISULFIDE
     Indication: Asthenia
     Dosage: 2 DOSAGE FORM
     Route: 065
     Dates: start: 200805
  32. NEUROBION FORTE [Suspect]
     Active Substance: CYANOCOBALAMIN\PYRIDOXINE HYDROCHLORIDE\THIAMINE DISULFIDE
     Indication: Pain
  33. GINKGO [Suspect]
     Active Substance: GINKGO
     Indication: Rash
     Dosage: 120 MG
     Route: 065
     Dates: start: 201003
  34. GINKGO [Suspect]
     Active Substance: GINKGO
     Indication: Pain
  35. FEXOFENADINE HYDROCHLORIDE [Suspect]
     Active Substance: FEXOFENADINE HYDROCHLORIDE
     Indication: Headache
     Dosage: 180 MG
     Route: 065
     Dates: start: 201003
  36. ALPRAZOLAM [Concomitant]
     Active Substance: ALPRAZOLAM
     Indication: Persistent depressive disorder
     Dosage: UNK
     Route: 065
     Dates: start: 200805

REACTIONS (35)
  - Diplopia [Unknown]
  - Schizophrenia [Unknown]
  - Anxiety [Unknown]
  - Depression [Unknown]
  - Neurosis [Unknown]
  - Quadriparesis [Unknown]
  - Syncope [Unknown]
  - Dizziness [Unknown]
  - Sedation [Unknown]
  - Vomiting [Unknown]
  - Asthenia [Unknown]
  - Pain [Unknown]
  - Loss of consciousness [Unknown]
  - Euphoric mood [Unknown]
  - Psychomotor skills impaired [Unknown]
  - Fatigue [Unknown]
  - Condition aggravated [Unknown]
  - Sensory disturbance [Unknown]
  - Erythema [Unknown]
  - Oedema [Unknown]
  - Musculoskeletal stiffness [Unknown]
  - Pruritus [Unknown]
  - Headache [Unknown]
  - Gastrointestinal motility disorder [Unknown]
  - Constipation [Unknown]
  - Drug ineffective [Unknown]
  - Persistent depressive disorder [Unknown]
  - Drug interaction [Unknown]
  - Feeling abnormal [Unknown]
  - Nausea [Unknown]
  - Cognitive disorder [Unknown]
  - Disturbance in attention [Unknown]
  - Conversion disorder [Unknown]
  - Confusional state [Unknown]
  - Ataxia [Unknown]
